FAERS Safety Report 20069064 (Version 1)
Quarter: 2021Q4

REPORT INFORMATION
  Report Type: Report from Study
  Country: CZ (occurrence: CZ)
  Receive Date: 20211115
  Receipt Date: 20211115
  Transmission Date: 20220303
  Serious: Yes (Hospitalization, Other)
  Sender: FDA-Public Use
  Company Number: CZ-ABBVIE-21K-217-4098201-00

PATIENT
  Age: 81 Year
  Sex: Male
  Weight: 85 kg

DRUGS (6)
  1. HUMIRA [Suspect]
     Active Substance: ADALIMUMAB
     Indication: Ankylosing spondylitis
     Route: 058
     Dates: start: 20200108, end: 20210825
  2. CYNT [Concomitant]
     Indication: Hypertension
     Route: 048
  3. OMEPRAZOLE [Concomitant]
     Active Substance: OMEPRAZOLE
     Indication: Prophylaxis
     Route: 048
  4. NIMESULIDE [Concomitant]
     Active Substance: NIMESULIDE
     Indication: Ankylosing spondylitis
     Route: 048
  5. LERCANIDIPINE HYDROCHLORIDE [Concomitant]
     Active Substance: LERCANIDIPINE HYDROCHLORIDE
     Indication: Hypertension
     Route: 048
  6. LOZAP [Concomitant]
     Indication: Hypertension
     Route: 048

REACTIONS (3)
  - Atrial fibrillation [Recovered/Resolved]
  - Cerebrovascular accident [Recovered/Resolved]
  - Vascular encephalopathy [Unknown]

NARRATIVE: CASE EVENT DATE: 20210831
